FAERS Safety Report 7389786-4 (Version None)
Quarter: 2011Q2

REPORT INFORMATION
  Report Type: 
  Country: None (occurrence: None)
  Receive Date: 20110401
  Receipt Date: 20110324
  Transmission Date: 20111010
  Serious: Yes (Other)
  Sender: FDA-Public Use
  Company Number: US-CEPHALON-2009029477

PATIENT
  Age: 42 Year
  Sex: Male
  Weight: 126 kg

DRUGS (6)
  1. ACTIQ [Suspect]
     Indication: BACK PAIN
     Route: 002
     Dates: start: 20031120, end: 20070115
  2. VALIUM [Concomitant]
  3. LIDODERM [Concomitant]
  4. DURAGESIC-50 [Concomitant]
  5. CYMBALTA [Concomitant]
  6. DILAUDID [Concomitant]

REACTIONS (8)
  - TOOTH FRACTURE [None]
  - GINGIVAL INFECTION [None]
  - ORAL DISORDER [None]
  - TOOTHACHE [None]
  - DRY MOUTH [None]
  - DENTAL CARIES [None]
  - TOOTH LOSS [None]
  - TOOTH ABSCESS [None]
